FAERS Safety Report 24105310 (Version 1)
Quarter: 2024Q3

REPORT INFORMATION
  Report Type: Report from Study
  Country: DE (occurrence: DE)
  Receive Date: 20240717
  Receipt Date: 20240717
  Transmission Date: 20241016
  Serious: Yes (Life-Threatening, Hospitalization, Other)
  Sender: EMD SERONO INC
  Company Number: DE-MedicalSyn-Clarion144987

PATIENT
  Age: 55 Year
  Sex: Male
  Weight: 79 kg

DRUGS (8)
  1. FINGOLIMOD [Suspect]
     Active Substance: FINGOLIMOD
     Indication: Relapsing-remitting multiple sclerosis
     Dosage: TEMPORARILY DISCONTINUED ON 28-NOV-2023
     Route: 048
     Dates: start: 20211007, end: 20231127
  2. ASPIRIN [Concomitant]
     Active Substance: ASPIRIN
     Indication: Cardiac disorder
     Route: 048
  3. NOVALGIN (METAMIZOLE SODIUM) [Concomitant]
     Active Substance: METAMIZOLE SODIUM
     Indication: Back pain
     Route: 048
  4. BACLOFEN [Concomitant]
     Active Substance: BACLOFEN
     Indication: Muscle spasticity
     Route: 048
     Dates: start: 20210907
  5. HYDROMORPHONE [Concomitant]
     Active Substance: HYDROMORPHONE
     Indication: Intervertebral disc disorder
     Route: 048
  6. NABIXIMOLS [Concomitant]
     Active Substance: NABIXIMOLS
     Indication: Muscle spasticity
     Dates: start: 20230824
  7. NABIXIMOLS [Concomitant]
     Active Substance: NABIXIMOLS
     Indication: Insomnia
  8. PANTOPRAZOLE [Concomitant]
     Active Substance: PANTOPRAZOLE
     Indication: Gastrointestinal disorder
     Route: 048

REACTIONS (3)
  - Respiratory failure [Recovered/Resolved]
  - Acute respiratory distress syndrome [Recovered/Resolved]
  - Pneumonia influenzal [Recovered/Resolved]

NARRATIVE: CASE EVENT DATE: 20231128
